FAERS Safety Report 21299009 (Version 1)
Quarter: 2022Q3

REPORT INFORMATION
  Report Type: Spontaneous
  Country: CA (occurrence: CA)
  Receive Date: 20220906
  Receipt Date: 20220906
  Transmission Date: 20221027
  Serious: Yes (Other)
  Sender: FDA-Public Use
  Company Number: CA-TAKEDA-2022TUS061289

PATIENT
  Age: 14 Year
  Sex: Female

DRUGS (12)
  1. MESALAMINE [Suspect]
     Active Substance: MESALAMINE
     Indication: Crohn^s disease
     Dosage: 4 GRAM, QD
     Route: 065
  2. METHOTREXATE [Suspect]
     Active Substance: METHOTREXATE
     Indication: Crohn^s disease
     Dosage: UNK
     Route: 065
  3. ALLOPURINOL [Suspect]
     Active Substance: ALLOPURINOL
     Indication: Crohn^s disease
     Dosage: 50 MILLIGRAM, QD
     Route: 065
  4. ADALIMUMAB [Suspect]
     Active Substance: ADALIMUMAB
     Indication: Crohn^s disease
     Dosage: UNK
     Route: 065
  5. AZATHIOPRINE [Suspect]
     Active Substance: AZATHIOPRINE
     Indication: Crohn^s disease
     Dosage: 25 MILLIGRAM, QD
     Route: 065
  6. BUDESONIDE [Suspect]
     Active Substance: BUDESONIDE
     Indication: Crohn^s disease
     Dosage: 9 MILLIGRAM, QD
     Route: 065
  7. INFLIXIMAB [Suspect]
     Active Substance: INFLIXIMAB
     Indication: Crohn^s disease
     Dosage: UNK
     Route: 065
  8. MONGERSEN [Suspect]
     Active Substance: MONGERSEN
     Indication: Crohn^s disease
     Dosage: UNK
     Route: 065
  9. PREDNISONE [Suspect]
     Active Substance: PREDNISONE
     Indication: Crohn^s disease
     Dosage: UNK
     Route: 065
  10. TOFACITINIB [Suspect]
     Active Substance: TOFACITINIB
     Indication: Crohn^s disease
     Dosage: UNK
     Route: 065
  11. USTEKINUMAB [Suspect]
     Active Substance: USTEKINUMAB
     Indication: Crohn^s disease
     Dosage: 90 MILLIGRAM, Q4WEEKS
     Route: 058
  12. USTEKINUMAB [Suspect]
     Active Substance: USTEKINUMAB
     Dosage: 90 MILLIGRAM, Q8WEEKS
     Route: 058

REACTIONS (1)
  - Drug ineffective [Recovering/Resolving]
